FAERS Safety Report 24629315 (Version 2)
Quarter: 2025Q3

REPORT INFORMATION
  Report Type: Spontaneous
  Country: US (occurrence: US)
  Receive Date: 20241118
  Receipt Date: 20250810
  Transmission Date: 20251020
  Serious: Yes (Hospitalization)
  Sender: ALEXION PHARMACEUTICALS
  Company Number: US-AstraZeneca-CH-00709227A

PATIENT
  Age: 82 Year
  Sex: Male

DRUGS (1)
  1. TAGRISSO [Suspect]
     Active Substance: OSIMERTINIB

REACTIONS (4)
  - Fatigue [Unknown]
  - Dyspnoea [Unknown]
  - Anaemia [Unknown]
  - Therapy cessation [Unknown]
